FAERS Safety Report 6191471-1 (Version None)
Quarter: 2009Q2

REPORT INFORMATION
  Report Type: 
  Country: None (occurrence: None)
  Receive Date: 20090515
  Receipt Date: 20090505
  Transmission Date: 20091009
  Serious: Yes (Other)
  Sender: FDA-Public Use
  Company Number: US-ELI_LILLY_AND_COMPANY-US200905000847

PATIENT
  Sex: Female

DRUGS (4)
  1. ZYPREXA [Suspect]
     Indication: SCHIZOPHRENIA
     Dosage: 5 MG, UNK
  2. ZYPREXA [Suspect]
     Dosage: 30 MG, UNK
  3. ZYPREXA [Suspect]
     Dosage: 20 MG, UNK
  4. ZYPREXA [Suspect]
     Dosage: 10 MG, UNK

REACTIONS (7)
  - BREAST CANCER [None]
  - GAIT DISTURBANCE [None]
  - MOUTH BREATHING [None]
  - OVERDOSE [None]
  - STRESS [None]
  - TYPE 2 DIABETES MELLITUS [None]
  - WEIGHT INCREASED [None]
